FAERS Safety Report 25761784 (Version 1)
Quarter: 2025Q3

REPORT INFORMATION
  Report Type: Spontaneous
  Country: US (occurrence: None)
  Receive Date: 20250904
  Receipt Date: 20250904
  Transmission Date: 20251020
  Serious: Yes (Hospitalization)
  Sender: FDA-CTU
  Company Number: None

PATIENT
  Age: 41 Year
  Sex: Male

DRUGS (2)
  1. TAVNEOS [Suspect]
     Active Substance: AVACOPAN
     Dosage: FREQUENCY : TWICE A DAY;?
     Route: 048
     Dates: start: 20250618
  2. TAVNEOS [Concomitant]
     Active Substance: AVACOPAN
     Dates: start: 20250618

REACTIONS (4)
  - Drug ineffective [None]
  - Renal failure [None]
  - Dialysis [None]
  - Renal transplant [None]

NARRATIVE: CASE EVENT DATE: 20250904
